FAERS Safety Report 8621444 (Version 2)
Quarter: 2013Q1

REPORT INFORMATION
  Report Type: Spontaneous
  Country: FR (occurrence: FR)
  Receive Date: 20120619
  Receipt Date: 20130118
  Transmission Date: 20140127
  Serious: Yes (Hospitalization)
  Sender: FDA-Public Use
  Company Number: FR-ELI_LILLY_AND_COMPANY-FR201206002655

PATIENT
  Age: 77 Year
  Sex: Female

DRUGS (7)
  1. FORSTEO [Suspect]
     Indication: OSTEOPOROSIS
     Dosage: 20 UG, QD
     Dates: start: 20110513
  2. FORSTEO [Suspect]
     Dosage: 20 UG, QD
     Route: 058
     Dates: start: 20110502
  3. SINTROM [Concomitant]
  4. LAMALINE [Concomitant]
  5. STABLON [Concomitant]
  6. LEXOMIL [Concomitant]
  7. ATARAX [Concomitant]

REACTIONS (1)
  - Abdominal hernia [Recovered/Resolved]
